FAERS Safety Report 7631248-0 (Version None)
Quarter: 2011Q3

REPORT INFORMATION
  Report Type: 
  Country: None (occurrence: None)
  Receive Date: 20110725
  Receipt Date: 20110712
  Transmission Date: 20111222
  Serious: Yes (Life-Threatening)
  Sender: FDA-Public Use
  Company Number: JP-TEVA-291713ISR

PATIENT
  Age: 73 Year
  Sex: Male

DRUGS (14)
  1. LANSOPRAZOLE [Suspect]
     Indication: GASTROOESOPHAGEAL REFLUX DISEASE
     Route: 048
     Dates: start: 20100806, end: 20100920
  2. DOXORUBICIN HYDROCHLORIDE [Suspect]
     Dosage: 44 MILLIGRAM;
     Route: 041
     Dates: start: 20100819, end: 20100819
  3. CEFAZOLIN [Concomitant]
     Dates: start: 20100921
  4. LANSOPRAZOLE [Suspect]
     Dosage: 60 MILLIGRAM;
     Route: 040
     Dates: start: 20100921, end: 20100927
  5. DOXORUBICIN HYDROCHLORIDE [Suspect]
     Indication: OESOPHAGEAL CARCINOMA
     Dosage: 55 MILLIGRAM;
     Route: 041
     Dates: start: 20100723, end: 20100723
  6. PIOGLITAZONE [Concomitant]
     Dates: start: 20100715, end: 20100920
  7. BEZATOL [Concomitant]
     Dates: start: 20100715, end: 20100920
  8. CISPLATIN [Suspect]
     Indication: OESOPHAGEAL CARCINOMA
     Dosage: 110 MILLIGRAM;
     Route: 041
     Dates: start: 20100723, end: 20100723
  9. FLUOROURACIL [Suspect]
     Indication: OESOPHAGEAL CARCINOMA
     Dosage: 1100 MILLIGRAM;
     Route: 041
     Dates: start: 20100723, end: 20100729
  10. RAMELTEON [Concomitant]
     Dates: start: 20100723, end: 20100729
  11. CISPLATIN [Suspect]
     Dosage: 88 MILLIGRAM;
     Route: 041
     Dates: start: 20100819, end: 20100819
  12. LANSOPRAZOLE [Suspect]
     Dosage: 30 MILLIGRAM;
     Route: 048
     Dates: start: 20110114
  13. AMLODIPINE BESYLATE [Concomitant]
     Dates: start: 20100715, end: 20100920
  14. DOXAZOSIN MESYLATE [Concomitant]
     Dates: start: 20100715, end: 20100920

REACTIONS (2)
  - SEPTIC SHOCK [None]
  - AEROMONA INFECTION [None]
